FAERS Safety Report 10054201 (Version 1)
Quarter: 2014Q2

REPORT INFORMATION
  Report Type: Report from Study
  Country: US (occurrence: US)
  Receive Date: 20140402
  Receipt Date: 20140402
  Transmission Date: 20141212
  Serious: Yes (Hospitalization)
  Sender: FDA-Public Use
  Company Number: US-ALEXION-A201401099

PATIENT
  Sex: 0

DRUGS (18)
  1. ECULIZUMAB [Suspect]
     Indication: HAEMOLYTIC URAEMIC SYNDROME
     Dosage: 30 ML, Q2W
     Route: 042
  2. EPOGEN [Concomitant]
     Indication: RENAL FAILURE CHRONIC
     Dosage: 1 ML, MON/FRI
     Route: 042
  3. CHOLECALCIFEROL [Concomitant]
     Indication: PRODUCT USED FOR UNKNOWN INDICATION
     Dosage: 1 ML, QD
     Route: 048
  4. CLARITIN                           /00413701/ [Concomitant]
     Indication: RENAL FAILURE CHRONIC
     Dosage: 5 ML, QD
     Route: 048
  5. PATANOL [Concomitant]
     Indication: RENAL FAILURE CHRONIC
     Dosage: 1 DF, BID
     Route: 047
  6. ENALAPRIL [Concomitant]
     Indication: CLOSTRIDIUM COLITIS
     Dosage: 2.5 ML, BID
     Route: 048
  7. TENORMIN [Concomitant]
     Indication: RENAL FAILURE CHRONIC
     Dosage: 0.5 DF, QD
     Route: 048
  8. VASOTEC                            /00574902/ [Concomitant]
     Indication: PRODUCT USED FOR UNKNOWN INDICATION
     Dosage: 2.5 MG, BID
     Route: 048
  9. VENOFER [Concomitant]
     Indication: RENAL FAILURE CHRONIC
     Dosage: 2.5 ML, QW
     Route: 042
  10. RENVELA [Concomitant]
     Indication: RENAL FAILURE CHRONIC
     Dosage: 3 DF, TID
     Route: 048
  11. RENVELA [Concomitant]
     Dosage: 1 DF, PRN
  12. NORVASC [Concomitant]
     Indication: RENAL FAILURE CHRONIC
     Dosage: 2.5 MG SUN/TUES/THURS, PRN
     Route: 048
  13. KAYEXALATE [Concomitant]
     Indication: RENAL FAILURE CHRONIC
     Dosage: 5 G, BID
     Route: 050
  14. CLONIDINE [Concomitant]
     Indication: RENAL FAILURE CHRONIC
     Route: 048
  15. GENOTROPIN [Concomitant]
     Indication: RENAL FAILURE CHRONIC
     Dosage: 0.8 MG, QD
     Route: 058
  16. RANITIDINE [Concomitant]
     Indication: RENAL FAILURE CHRONIC
     Dosage: 2.5 ML, BID
     Route: 048
  17. CARNITOR [Concomitant]
     Indication: RENAL FAILURE CHRONIC
     Dosage: 4 ML MON/WED/FRI/SAT
     Route: 042
  18. VITAL-D RX [Concomitant]
     Indication: RENAL FAILURE CHRONIC
     Dosage: 0.5 DF, QD
     Route: 048

REACTIONS (4)
  - Pyrexia [Recovered/Resolved]
  - Oropharyngeal pain [Recovered/Resolved]
  - Neck pain [Recovered/Resolved]
  - Pain in extremity [Recovered/Resolved]
